FAERS Safety Report 10885669 (Version 2)
Quarter: 2015Q1

REPORT INFORMATION
  Report Type: Spontaneous
  Country: US (occurrence: None)
  Receive Date: 20150227
  Receipt Date: 20150302
  Transmission Date: 20150721
  Serious: Yes (Other)
  Sender: FDA-Public Use
  Company Number: 2015US001495

PATIENT
  Sex: Male
  Weight: 84.4 kg

DRUGS (7)
  1. LEVAQUIN [Concomitant]
     Active Substance: LEVOFLOXACIN
  2. ASPIRIN /00002701/ (ACETYLSALICYLIC ACID) [Concomitant]
  3. ELIGARD [Suspect]
     Active Substance: LEUPROLIDE ACETATE
     Indication: PRODUCT USED FOR UNKNOWN INDICATION
     Dosage: 30 MG, 4 MONTH DOSE
     Route: 058
     Dates: start: 20150212, end: 20150217
  4. JANUVIA [Concomitant]
     Active Substance: SITAGLIPTIN PHOSPHATE
  5. ULORIC [Concomitant]
     Active Substance: FEBUXOSTAT
  6. NASONEX [Concomitant]
     Active Substance: MOMETASONE FUROATE
  7. WELCHOL (COLESEVELAM HYDROCHLORIDE) [Concomitant]

REACTIONS (3)
  - Gait disturbance [None]
  - Dizziness [None]
  - Balance disorder [None]

NARRATIVE: CASE EVENT DATE: 20150212
